FAERS Safety Report 14415799 (Version 1)
Quarter: 2018Q1

REPORT INFORMATION
  Report Type: Spontaneous
  Country: DE (occurrence: DE)
  Receive Date: 20180122
  Receipt Date: 20180122
  Transmission Date: 20180509
  Serious: Yes (Other)
  Sender: FDA-Public Use
  Company Number: DE-009507513-1801DEU006384

PATIENT
  Age: 67 Year
  Sex: Female

DRUGS (12)
  1. VENLAFAXINE HYDROCHLORIDE. [Suspect]
     Active Substance: VENLAFAXINE HYDROCHLORIDE
     Dosage: ONGOING
     Route: 048
     Dates: start: 2015
  2. MIRTAZAPIN STADA [Suspect]
     Active Substance: MIRTAZAPINE
     Indication: SLEEP DISORDER
     Dosage: 15 MG, QD
     Route: 048
     Dates: start: 20170510, end: 20170727
  3. EMSELEX [Concomitant]
     Active Substance: DARIFENACIN HYDROBROMIDE
     Dosage: ONGOING
     Route: 048
  4. METFORMIN [Concomitant]
     Active Substance: METFORMIN HYDROCHLORIDE
     Dosage: FOR YEARS- ONGOING
     Route: 048
  5. QUILONORM-RETARD [Suspect]
     Active Substance: LITHIUM CARBONATE
     Dosage: ONGOING
     Route: 048
     Dates: start: 2015
  6. BISOPROLOL [Concomitant]
     Active Substance: BISOPROLOL
     Dosage: FOR YEARS-ONGOING
     Route: 048
  7. INSULIN [Concomitant]
     Active Substance: INSULIN NOS
     Dosage: ONGOING
     Route: 058
     Dates: start: 2016
  8. INEGY [Concomitant]
     Active Substance: EZETIMIBE\SIMVASTATIN
     Indication: LIPIDS INCREASED
     Dosage: 20/10 MG/D - ONGOING
     Dates: start: 2012
  9. ELIQUIS [Concomitant]
     Active Substance: APIXABAN
     Dosage: ONGOING
     Route: 048
     Dates: start: 2015
  10. RAMIPRIL. [Concomitant]
     Active Substance: RAMIPRIL
     Dosage: FOR YEARS -ONGOING
     Route: 048
  11. BYETTA [Concomitant]
     Active Substance: EXENATIDE
     Dosage: ONGOING
     Route: 058
     Dates: start: 2016
  12. TOREM [Concomitant]
     Active Substance: TORSEMIDE
     Dosage: FOR YEARS- ONGOING
     Route: 048

REACTIONS (3)
  - Weight increased [Not Recovered/Not Resolved]
  - Increased appetite [Recovered/Resolved]
  - Appetite disorder [Recovered/Resolved]

NARRATIVE: CASE EVENT DATE: 20170726
